FAERS Safety Report 5789168-2 (Version None)
Quarter: 2008Q2

REPORT INFORMATION
  Report Type: 
  Country: None (occurrence: None)
  Receive Date: 20080625
  Receipt Date: 20080625
  Transmission Date: 20081010
  Serious: Yes (Hospitalization)
  Sender: FDA-Public Use
  Company Number: None

PATIENT
  Sex: Female
  Weight: 76.36 kg

DRUGS (3)
  1. DOXORUBICIN HYDROCHLORIDE [Suspect]
     Dosage: 78 MG
  2. TAXOL [Suspect]
     Dosage: 216 MG
  3. CISPLATIN [Suspect]
     Dosage: 52 MG

REACTIONS (4)
  - BRADYCARDIA [None]
  - CARDIAC ARREST [None]
  - NERVOUS SYSTEM DISORDER [None]
  - RENAL FAILURE [None]
